FAERS Safety Report 4282124-5 (Version None)
Quarter: 2004Q1

REPORT INFORMATION
  Report Type: 
  Country: None (occurrence: None)
  Receive Date: 20040130
  Receipt Date: 20030909
  Transmission Date: 20041129
  Serious: No
  Sender: FDA-Public Use
  Company Number: US-BRISTOL-MYERS SQUIBB COMPANY-12381315

PATIENT

DRUGS (1)
  1. DESYREL [Suspect]
     Route: 048

REACTIONS (1)
  - DRUG TOLERANCE [None]
